FAERS Safety Report 21955994 (Version 1)
Quarter: 2023Q1

REPORT INFORMATION
  Report Type: Spontaneous
  Country: US (occurrence: US)
  Receive Date: 20230206
  Receipt Date: 20230206
  Transmission Date: 20230418
  Serious: Yes (Death, Hospitalization)
  Sender: FDA-Public Use
  Company Number: US-STRIDES ARCOLAB LIMITED-2023SP001623

PATIENT
  Sex: Male

DRUGS (17)
  1. CYCLOSPORINE [Suspect]
     Active Substance: CYCLOSPORINE
     Indication: Immunosuppressant drug therapy
     Dosage: UNK, MAINTENANCE THERAPY DURING FIRST TRANSPLANT
     Route: 065
  2. CYCLOSPORINE [Suspect]
     Active Substance: CYCLOSPORINE
     Indication: Heart transplant
  3. MYCOPHENOLATE MOFETIL [Suspect]
     Active Substance: MYCOPHENOLATE MOFETIL
     Indication: Immunosuppressant drug therapy
     Dosage: UNK, MAINTENANCE THERAPY DURING FIRST TRANSPLANT
     Route: 065
  4. MYCOPHENOLATE MOFETIL [Suspect]
     Active Substance: MYCOPHENOLATE MOFETIL
     Indication: Heart transplant
     Dosage: 600 MILLIGRAM/SQ. METER, BID, MAINTENANCE THERAPY DURING SECOND TRANSPLANT
     Route: 065
  5. MYCOPHENOLATE MOFETIL [Suspect]
     Active Substance: MYCOPHENOLATE MOFETIL
     Dosage: UNK, WAS WEANED
     Route: 065
  6. TACROLIMUS [Suspect]
     Active Substance: TACROLIMUS
     Indication: Immunosuppressant drug therapy
     Dosage: UNK, WITH INITIAL GOAL TROUGH 10-12 NG/ML
     Route: 065
  7. TACROLIMUS [Suspect]
     Active Substance: TACROLIMUS
     Indication: Heart transplant
     Dosage: UNK, BY 6 MONTH POST TRANSPLANT TACROLIMUS WAS WEANED TO 6-8 NG/ML (DURING SECOND TRANSPLANT)
     Route: 065
  8. TACROLIMUS [Suspect]
     Active Substance: TACROLIMUS
     Dosage: UNK, WAS WEANED
     Route: 065
  9. PREDNISOLONE [Suspect]
     Active Substance: PREDNISOLONE
     Indication: Heart transplant
     Dosage: UNK, MAINTENANCE THERAPY DURING FIRST TRANSPLANT
     Route: 065
  10. PREDNISOLONE [Suspect]
     Active Substance: PREDNISOLONE
     Indication: Immunosuppressant drug therapy
     Dosage: 0.24 MILLIGRAM/KILOGRAM, MAINTENANCE THERAPY DURING 2ND TRANSPLANT (WEANED DOSE)
     Route: 065
  11. PREDNISOLONE [Suspect]
     Active Substance: PREDNISOLONE
     Dosage: UNK, WAS TAPERED OFF
     Route: 065
  12. METHYLPREDNISOLONE [Suspect]
     Active Substance: METHYLPREDNISOLONE
     Indication: Immunosuppressant drug therapy
     Dosage: 15 MILLIGRAM/KILOGRAM, INDUCTION THERAPY DURING 1ST TRANSPLANT
     Route: 042
  13. METHYLPREDNISOLONE [Suspect]
     Active Substance: METHYLPREDNISOLONE
     Indication: Heart transplant
     Dosage: 15 MILLIGRAM/KILOGRAM, INDUCTION THERAPY (DURING 2ND TRANSPLANT)
     Route: 042
  14. DACLIZUMAB [Suspect]
     Active Substance: DACLIZUMAB
     Indication: Immunosuppressant drug therapy
     Dosage: 1 MILLIGRAM/KILOGRAM, INDUCTION THERAPY; INTRAOPERATIVELY DURING FIRST TRANSPLANT
     Route: 042
  15. DACLIZUMAB [Suspect]
     Active Substance: DACLIZUMAB
     Indication: Heart transplant
     Dosage: UNK, EVERY 2 WEEK, FOR A TOTAL OF 5 DOSES DURING FIRST TRANSPLANT
     Route: 042
  16. THYMOCYTE IMMUNE GLOBULIN NOS [Suspect]
     Active Substance: THYMOCYTE IMMUNE GLOBULIN NOS
     Indication: Immunosuppressant drug therapy
     Dosage: 7.5 MILLIGRAM/KILOGRAM, OVER 5 DAYS; INDUCTION THERAPY DURING SECOND TRANSPLANT
     Route: 065
  17. THYMOCYTE IMMUNE GLOBULIN NOS [Suspect]
     Active Substance: THYMOCYTE IMMUNE GLOBULIN NOS
     Indication: Heart transplant

REACTIONS (7)
  - Lymphopenia [Fatal]
  - Rhinovirus infection [Fatal]
  - Enterovirus infection [Fatal]
  - Nocardiosis [Fatal]
  - Pneumonia bacterial [Fatal]
  - Brain abscess [Fatal]
  - CNS ventriculitis [Fatal]
